FAERS Safety Report 8425575 (Version 7)
Quarter: 2015Q2

REPORT INFORMATION
  Report Type: Report from Study
  Country: CA (occurrence: CA)
  Receive Date: 20120224
  Receipt Date: 20150508
  Transmission Date: 20150821
  Serious: Yes (Death, Hospitalization, Other)
  Sender: FDA-Public Use
  Company Number: PHHY2012CA012619

PATIENT
  Age: 69 Year
  Sex: Male

DRUGS (2)
  1. SANDOSTATIN LAR DEPOT [Suspect]
     Active Substance: OCTREOTIDE ACETATE
     Indication: CARCINOID TUMOUR
     Dosage: 40 MG, EVERY 3 WEEKS
     Route: 030
     Dates: start: 20021101
  2. SANDOSTATIN LAR DEPOT [Suspect]
     Active Substance: OCTREOTIDE ACETATE
     Dosage: 60 MG, EVERY 3 WEEKS
     Route: 030
     Dates: end: 20150327

REACTIONS (12)
  - Carcinoid tumour [Fatal]
  - Diarrhoea [Unknown]
  - Intestinal obstruction [Unknown]
  - Multiple injuries [Unknown]
  - Femoral artery occlusion [Unknown]
  - Ulcer [Unknown]
  - Coma [Unknown]
  - Asthenia [Unknown]
  - Angina unstable [Unknown]
  - Blood sodium abnormal [Unknown]
  - Road traffic accident [Unknown]
  - Blood potassium abnormal [Unknown]

NARRATIVE: CASE EVENT DATE: 201109
